FAERS Safety Report 7679869-3 (Version None)
Quarter: 2011Q3

REPORT INFORMATION
  Report Type: 
  Country: None (occurrence: None)
  Receive Date: 20110812
  Receipt Date: 20110808
  Transmission Date: 20111222
  Serious: Yes (Hospitalization)
  Sender: FDA-Public Use
  Company Number: JP-PFIZER INC-2011083893

PATIENT
  Age: 33 Year
  Sex: Male

DRUGS (4)
  1. SOMAVERT [Suspect]
     Indication: ACROMEGALY
     Dosage: 10 MG, 1X/DAY
     Route: 058
     Dates: start: 20110302, end: 20110316
  2. ZONISAMIDE [Concomitant]
     Indication: EPILEPSY
     Dosage: 200 MG, 1X/DAY
  3. DEPAKENE [Concomitant]
     Indication: EPILEPSY
     Dosage: 400 MG, 1X/DAY
  4. SANDOSTATIN [Concomitant]
     Indication: ACROMEGALY
     Dosage: UNK
     Route: 030

REACTIONS (1)
  - HEPATITIS CHOLESTATIC [None]
